FAERS Safety Report 10252433 (Version 1)
Quarter: 2014Q2

REPORT INFORMATION
  Report Type: Spontaneous
  Country: DE (occurrence: DE)
  Receive Date: 20140623
  Receipt Date: 20140623
  Transmission Date: 20141212
  Serious: Yes (Hospitalization)
  Sender: FDA-Public Use
  Company Number: DE-MYLANLABS-2014S1014571

PATIENT
  Age: 29 Year
  Sex: Female

DRUGS (7)
  1. OLANZAPINE [Suspect]
     Indication: SLEEP DISORDER
     Route: 065
  2. OLANZAPINE [Interacting]
     Indication: OFF LABEL USE
     Route: 065
  3. FLUVOXAMINE [Interacting]
     Indication: ENZYME INHIBITION
     Dosage: 25 MG/DAY
     Route: 065
  4. FLUVOXAMINE [Interacting]
     Indication: OFF LABEL USE
     Dosage: 25 MG/DAY
     Route: 065
  5. FLUVOXAMINE [Interacting]
     Indication: ENZYME INHIBITION
     Route: 065
  6. FLUVOXAMINE [Interacting]
     Indication: OFF LABEL USE
     Route: 065
  7. CLOZAPINE [Interacting]
     Indication: SCHIZOPHRENIA, DISORGANISED TYPE
     Dosage: 250 MG/DAY; 50MG-0-200MG-0
     Route: 065

REACTIONS (5)
  - Drug interaction [Recovered/Resolved]
  - Obsessive-compulsive disorder [Recovered/Resolved]
  - Constipation [Recovered/Resolved]
  - Dry mouth [Recovered/Resolved]
  - Vision blurred [Recovered/Resolved]
